FAERS Safety Report 26102681 (Version 1)
Quarter: 2025Q4

REPORT INFORMATION
  Report Type: Spontaneous
  Country: EU (occurrence: EU)
  Receive Date: 20251128
  Receipt Date: 20251128
  Transmission Date: 20260118
  Serious: Yes (Hospitalization)
  Sender: PFIZER
  Company Number: EU-ROCHE-1139524

PATIENT
  Age: 49 Year
  Sex: Female
  Weight: 67 kg

DRUGS (8)
  1. TRASTUZUMAB [Suspect]
     Active Substance: TRASTUZUMAB
     Dosage: DATE OF LAST DOSE PRIOR TO SAE: 20/SEP/2012 FREQUENCY TEXT:Q 3/52
     Route: 042
     Dates: start: 20120621
  2. DOCETAXEL [Suspect]
     Active Substance: DOCETAXEL
     Dosage: PERMANENTLY DISCONTINUEDFREQUENCY TEXT:Q 3/52
     Route: 042
     Dates: start: 20120621, end: 20120830
  3. PERTUZUMAB [Suspect]
     Active Substance: PERTUZUMAB
     Indication: Breast cancer
     Dosage: LOADING DOSE
     Route: 042
  4. PERTUZUMAB [Suspect]
     Active Substance: PERTUZUMAB
     Dosage: MAINTENANCE DOSEDATE OF LAST DOSE PRIOR TO SAE: 20/SEP/2012
     Route: 042
     Dates: start: 20120621
  5. CARBOPLATIN [Suspect]
     Active Substance: CARBOPLATIN
     Indication: Breast cancer
     Dosage: FORM STRENGTH: AUC 5, PERMANENTLY DISCONTINUEDFREQUENCY TEXT:Q 3/52
     Route: 042
     Dates: start: 20120621, end: 20120830
  6. ZOLPIDEM TARTRATE [Concomitant]
     Active Substance: ZOLPIDEM TARTRATE
     Route: 048
     Dates: start: 20120614
  7. ESOMEPRAZOLE MAGNESIUM [Concomitant]
     Active Substance: ESOMEPRAZOLE MAGNESIUM
     Route: 048
     Dates: start: 20120628
  8. ANASTROZOLE [Concomitant]
     Active Substance: ANASTROZOLE
     Route: 048
     Dates: start: 20120919

REACTIONS (2)
  - Upper respiratory tract infection [Recovered/Resolved]
  - Depression [Unknown]

NARRATIVE: CASE EVENT DATE: 20120924
